FAERS Safety Report 9703346 (Version 1)
Quarter: 2013Q4

REPORT INFORMATION
  Report Type: Report from Study
  Country: US (occurrence: US)
  Receive Date: 20131122
  Receipt Date: 20131122
  Transmission Date: 20140711
  Serious: Yes (Other)
  Sender: FDA-Public Use
  Company Number: PHEH2013US024196

PATIENT
  Sex: Female
  Weight: 38.95 kg

DRUGS (1)
  1. GILENYA [Suspect]
     Indication: MULTIPLE SCLEROSIS
     Dosage: 0.5 MG, QD
     Route: 048
     Dates: start: 20130923

REACTIONS (7)
  - Central nervous system lesion [Unknown]
  - Memory impairment [Unknown]
  - Fatigue [Unknown]
  - Paraesthesia [Recovering/Resolving]
  - Hypoaesthesia [Recovering/Resolving]
  - Pollakiuria [Unknown]
  - Dizziness [Unknown]
